FAERS Safety Report 19655138 (Version 1)
Quarter: 2021Q3

REPORT INFORMATION
  Report Type: Spontaneous
  Country: CA (occurrence: CA)
  Receive Date: 20210803
  Receipt Date: 20210803
  Transmission Date: 20211014
  Serious: Yes (Hospitalization, Other)
  Sender: FDA-Public Use
  Company Number: CA-BEH-2021134378

PATIENT
  Age: 46 Year
  Sex: Male

DRUGS (6)
  1. BERINERT [Suspect]
     Active Substance: HUMAN C1-ESTERASE INHIBITOR
     Indication: PROPHYLAXIS
     Dosage: 1500 INTERNATIONAL UNIT, 2 TIMES A WEEK
     Route: 042
  2. BERINERT [Suspect]
     Active Substance: HUMAN C1-ESTERASE INHIBITOR
     Dosage: 3000 INTERNATIONAL UNIT, 2 TIMES A WEEK
     Route: 058
  3. ICATIBANT [Suspect]
     Active Substance: ICATIBANT ACETATE
  4. C1?ESTERASE INHIBITOR (INN) [Suspect]
     Active Substance: HUMAN C1-ESTERASE INHIBITOR
     Indication: PROPHYLAXIS
     Dosage: UNK
     Route: 042
  5. BERINERT [Suspect]
     Active Substance: HUMAN C1-ESTERASE INHIBITOR
     Indication: PROPHYLAXIS
     Dosage: 1500 INTERNATIONAL UNIT, 2 TIMES A WEEK
     Route: 042
  6. BERINERT [Suspect]
     Active Substance: HUMAN C1-ESTERASE INHIBITOR
     Dosage: 3000 INTERNATIONAL UNIT, 2 TIMES A WEEK
     Route: 058

REACTIONS (10)
  - No adverse event [Unknown]
  - Off label use [Unknown]
  - Loss of consciousness [Unknown]
  - Hereditary angioedema [Unknown]
  - Product use in unapproved indication [Unknown]
  - Respiratory failure [Unknown]
  - Inappropriate schedule of product administration [Unknown]
  - Brain injury [Unknown]
  - Oxygen saturation decreased [Unknown]
  - Pulseless electrical activity [Unknown]
